FAERS Safety Report 7790324-2 (Version None)
Quarter: 2011Q3

REPORT INFORMATION
  Report Type: 
  Country: None (occurrence: None)
  Receive Date: 20110930
  Receipt Date: 20110923
  Transmission Date: 20111222
  Serious: Yes (Disabling, Other)
  Sender: FDA-Public Use
  Company Number: AU-B.I. PHARMACEUTICALS,INC./RIDGEFIELD-2011-AU-00978AU

PATIENT
  Sex: Male
  Weight: 100 kg

DRUGS (3)
  1. PRADAXA [Suspect]
     Indication: CEREBROVASCULAR ACCIDENT PROPHYLAXIS
     Dosage: 300 MG
     Dates: start: 20110727
  2. LIPITOR [Concomitant]
     Dates: start: 20110709
  3. DIGOXIN [Concomitant]
     Dates: start: 20110701

REACTIONS (3)
  - BLINDNESS [None]
  - HEMIPARESIS [None]
  - TRANSIENT ISCHAEMIC ATTACK [None]
